FAERS Safety Report 23797821 (Version 1)
Quarter: 2024Q2

REPORT INFORMATION
  Report Type: Spontaneous
  Country: US (occurrence: US)
  Receive Date: 20240430
  Receipt Date: 20240430
  Transmission Date: 20240716
  Serious: No
  Sender: FDA-Public Use
  Company Number: US-ELI_LILLY_AND_COMPANY-US202404018196

PATIENT
  Sex: Male

DRUGS (1)
  1. OLUMIANT [Suspect]
     Active Substance: BARICITINIB
     Indication: Off label use
     Dosage: 4 MG, UNKNOWN
     Route: 048

REACTIONS (3)
  - Off label use [Unknown]
  - Chills [Unknown]
  - Fatigue [Unknown]
